FAERS Safety Report 10521617 (Version 3)
Quarter: 2014Q4

REPORT INFORMATION
  Report Type: Report from Study
  Country: CZ (occurrence: CZ)
  Receive Date: 20141016
  Receipt Date: 20141127
  Transmission Date: 20150528
  Serious: Yes (Hospitalization)
  Sender: FDA-Public Use
  Company Number: CZ-ROCHE-1473507

PATIENT
  Age: 66 Year
  Sex: Female
  Weight: 52 kg

DRUGS (18)
  1. GLUCOSE 5% [Concomitant]
     Active Substance: DEXTROSE
     Route: 065
     Dates: start: 20140813
  2. TRASTUZUMAB [Suspect]
     Active Substance: TRASTUZUMAB
     Dosage: MAINTANANCE DOSE AS PER PROTOCOL.?MOST RECENT DOSE 312 MG PRIOR TO THE EVENT WAS RECEIVED ON 13/AUG/
     Route: 042
  3. GUAJACURAN [Concomitant]
     Indication: PROPHYLAXIS
     Route: 065
     Dates: start: 20140820
  4. CISPLATIN. [Suspect]
     Active Substance: CISPLATIN
     Indication: GASTRIC CANCER
     Dosage: MOST RECENT DOSE 121 MG PRIOR TO THE EVENT WAS RECEIVED ON 13/AUG/2014.
     Route: 042
     Dates: start: 20140813
  5. MGSO4 [Concomitant]
     Active Substance: MAGNESIUM SULFATE
     Route: 065
     Dates: start: 20140813
  6. ZOFRAN [Concomitant]
     Active Substance: ONDANSETRON HYDROCHLORIDE
     Indication: PROPHYLAXIS OF NAUSEA AND VOMITING
     Route: 065
     Dates: start: 20140827
  7. FRAXIPARINE [Concomitant]
     Active Substance: NADROPARIN CALCIUM
     Indication: THROMBOSIS
     Route: 065
     Dates: start: 20140924, end: 20140924
  8. ALOXI [Concomitant]
     Active Substance: PALONOSETRON HYDROCHLORIDE
     Route: 065
     Dates: start: 20140813
  9. TRASTUZUMAB [Suspect]
     Active Substance: TRASTUZUMAB
     Indication: GASTRIC CANCER
     Dosage: LOADING DOSE ON DAY 1 CYCLE 1 AS PER PROTOCOL
     Route: 042
     Dates: start: 20140813
  10. CAPECITABINE. [Suspect]
     Active Substance: CAPECITABINE
     Indication: GASTRIC CANCER
     Dosage: MOST RECENT TOTAL DAILY DOSE 2500 MG  PRIOR TO THE EVENT WAS RECEIVED ON 13/AUG/2014.
     Route: 048
     Dates: start: 20140813
  11. EMEND [Concomitant]
     Active Substance: APREPITANT
     Route: 065
     Dates: start: 20140813
  12. DEXAMED (CZECH REPUBLIC) [Concomitant]
     Route: 065
     Dates: start: 20140813
  13. MANNITOL 20% [Concomitant]
     Route: 065
     Dates: start: 20140813
  14. APAURIN [Concomitant]
     Active Substance: DIAZEPAM
     Indication: DECREASED APPETITE
     Route: 065
     Dates: start: 20141011, end: 20141012
  15. PARALEN [Concomitant]
     Active Substance: ACETAMINOPHEN
     Indication: PYREXIA
     Route: 065
     Dates: start: 201406
  16. HELICID [Concomitant]
     Route: 065
     Dates: start: 201406
  17. DEGAN [Concomitant]
     Active Substance: METOCLOPRAMIDE HYDROCHLORIDE
     Indication: PROPHYLAXIS OF NAUSEA AND VOMITING
     Route: 065
     Dates: start: 201407
  18. POTASSIUM CHLORIDE. [Concomitant]
     Active Substance: POTASSIUM CHLORIDE
     Route: 065
     Dates: start: 20140813

REACTIONS (1)
  - Decreased appetite [Recovered/Resolved]

NARRATIVE: CASE EVENT DATE: 20140814
